FAERS Safety Report 25816477 (Version 1)
Quarter: 2025Q3

REPORT INFORMATION
  Report Type: Spontaneous
  Country: JP (occurrence: JP)
  Receive Date: 20250918
  Receipt Date: 20250918
  Transmission Date: 20251021
  Serious: Yes (Other)
  Sender: JOHNSON AND JOHNSON
  Company Number: JP-JNJFOC-20250927277

PATIENT
  Age: 6 Decade
  Sex: Male

DRUGS (14)
  1. RISPERDAL [Suspect]
     Active Substance: RISPERIDONE
     Indication: Schizophrenia
     Route: 048
  2. RISPERDAL [Suspect]
     Active Substance: RISPERIDONE
     Route: 048
  3. RISPERDAL [Suspect]
     Active Substance: RISPERIDONE
     Route: 048
  4. RISPERDAL [Suspect]
     Active Substance: RISPERIDONE
     Indication: Schizophrenia
     Dosage: EARLY OF SEP IN YEAR X
     Route: 048
  5. RISPERDAL [Suspect]
     Active Substance: RISPERIDONE
     Dosage: EARLY OF OCT IN YEAR X
     Route: 048
  6. RISPERDAL [Suspect]
     Active Substance: RISPERIDONE
     Dosage: AT BEDTIME, EARLY OF OCT IN YEAR X
     Route: 048
  7. RISPERDAL [Suspect]
     Active Substance: RISPERIDONE
     Dosage: END OF OCT IN YEAR X
     Route: 048
  8. RISPERDAL [Suspect]
     Active Substance: RISPERIDONE
     Dosage: END OF NOV IN YEAR X
     Route: 048
  9. RISPERDAL [Suspect]
     Active Substance: RISPERIDONE
     Dosage: MID JAN OF YEAR X+1
     Route: 048
  10. RISPERDAL [Suspect]
     Active Substance: RISPERIDONE
     Dosage: FROM EARLY FEB OF YEAR X+1 TO END MAR OF YEAR X+1
     Route: 048
  11. INVEGA [Concomitant]
     Active Substance: PALIPERIDONE
     Indication: Schizophrenia
     Dosage: END OF MAR IN YEAR X + 1
     Route: 048
  12. AKINETON [Concomitant]
     Active Substance: BIPERIDEN HYDROCHLORIDE
     Indication: Schizophrenia
     Route: 065
  13. AKINETON [Concomitant]
     Active Substance: BIPERIDEN HYDROCHLORIDE
     Dosage: MID OCT OF YEAR X
     Route: 065
  14. AKINETON [Concomitant]
     Active Substance: BIPERIDEN HYDROCHLORIDE
     Dosage: END OF NOV IN YEAR X
     Route: 065

REACTIONS (9)
  - Hallucination, auditory [Unknown]
  - Soliloquy [Unknown]
  - Inappropriate affect [Unknown]
  - Insomnia [Recovered/Resolved]
  - Tremor [Unknown]
  - Dizziness [Unknown]
  - Dyskinesia [Unknown]
  - Treatment noncompliance [Unknown]
  - Off label use [Unknown]
